FAERS Safety Report 8343702-7 (Version None)
Quarter: 2012Q2

REPORT INFORMATION
  Report Type: 
  Country: None (occurrence: None)
  Receive Date: 20120508
  Receipt Date: 20120424
  Transmission Date: 20120825
  Serious: Yes (Death, Other)
  Sender: FDA-Public Use
  Company Number: TR-RANBAXY-2012RR-53424

PATIENT
  Age: 30 Year
  Sex: Male

DRUGS (2)
  1. ETODOLAC [Suspect]
     Indication: ALLERGY TEST
     Dosage: 750 MG, UNK
     Route: 048
  2. ETODOLAC [Suspect]
     Indication: PRODUCT USED FOR UNKNOWN INDICATION
     Dosage: UNK
     Route: 065

REACTIONS (1)
  - DRUG ERUPTION [None]
